FAERS Safety Report 9546904 (Version 1)
Quarter: 2013Q2

REPORT INFORMATION
  Report Type: Spontaneous
  Country: US (occurrence: None)
  Receive Date: 20130606
  Receipt Date: 20130606
  Transmission Date: 20140414
  Serious: Yes (Other)
  Sender: FDA-Public Use
  Company Number: 163-POMAL-13041691

PATIENT
  Sex: Male
  Weight: 99.79 kg

DRUGS (17)
  1. POMALYST [Suspect]
     Indication: PLASMA CELL MYELOMA
     Dosage: 3 MG, 21 IN 21 D PO
     Route: 048
     Dates: start: 20130312
  2. ACYCLOVIR(ACICLOVIR) [Concomitant]
  3. AMARYL(GLIMEPIRIDE) [Concomitant]
  4. AMBIEN ZOLPIDEM TARTRATE) [Concomitant]
  5. CELEBREX(CELECOXIB) [Concomitant]
  6. COUMADIN(WARFARIN SODIUM) [Concomitant]
  7. CRANBERRY(VACCINIUM OXYCOCCUS FRUIT EXTRACT) [Concomitant]
  8. CRESTOR(ROSUVASTATIN) [Concomitant]
  9. CYMBALTA(DULOXETINE HYDROCHLORIDE) [Concomitant]
  10. DEXAMETHOSONE(DEXAMETHASONE) [Concomitant]
  11. FAMOTIDINE(FAMOTIDINE) [Concomitant]
  12. FIBER(POLYCARBOPHIL CALCIUM) [Concomitant]
  13. FLOMAX(TAMSULOSIN HYDROCHLORIDE) [Concomitant]
  14. MULTIVITMAINS(MULTIVITAMINS) [Concomitant]
  15. NEURONTIN(GABAPENTIN) [Concomitant]
  16. VITAMIN B(VITAMIN B) [Concomitant]
  17. TERAZOSIN(TERAZOSIN) [Concomitant]

REACTIONS (1)
  - Hypotension [None]
